FAERS Safety Report 4369997-2 (Version None)
Quarter: 2004Q2

REPORT INFORMATION
  Report Type: 
  Country: None (occurrence: None)
  Receive Date: 20040603
  Receipt Date: 20011112
  Transmission Date: 20050107
  Serious: Yes (Other)
  Sender: FDA-Public Use
  Company Number: IT-GLAXOSMITHKLINE-B0315320A

PATIENT
  Age: 51 Year
  Sex: Male

DRUGS (4)
  1. CHLORHEXIDINE GLUCONATE [Suspect]
     Indication: PERIODONTITIS
  2. CHLORHEXIDINE GLUCONATE [Suspect]
     Route: 048
  3. AMOXICILLIN [Concomitant]
     Indication: PERIODONTITIS
  4. ENALAPRIL [Concomitant]
     Indication: HYPERTENSION
     Route: 048

REACTIONS (1)
  - FACIAL PALSY [None]
